FAERS Safety Report 4589148-9 (Version None)
Quarter: 2005Q1

REPORT INFORMATION
  Report Type: 
  Country: None (occurrence: None)
  Receive Date: 20050215
  Receipt Date: 20050215
  Transmission Date: 20050727
  Serious: Yes (Life-Threatening)
  Sender: FDA-Public Use
  Company Number: None

PATIENT
  Sex: Male
  Weight: 78.9259 kg

DRUGS (1)
  1. LUPRON [Suspect]
     Indication: PROSTATE CANCER
     Dosage: MONTHLY INTRAMUSCULAR
     Route: 030
     Dates: start: 20041001, end: 20041101

REACTIONS (9)
  - ANDROGEN DEFICIENCY [None]
  - BLOOD ALBUMIN DECREASED [None]
  - DIALYSIS [None]
  - GENERALISED OEDEMA [None]
  - HYPOPROTEINAEMIA [None]
  - MALAISE [None]
  - OEDEMA [None]
  - RENAL FAILURE ACUTE [None]
  - WEIGHT INCREASED [None]
